FAERS Safety Report 8169358-4 (Version None)
Quarter: 2012Q1

REPORT INFORMATION
  Report Type: 
  Country: None (occurrence: None)
  Receive Date: 20120222
  Receipt Date: 20120210
  Transmission Date: 20120608
  Serious: Yes (Other)
  Sender: FDA-Public Use
  Company Number: FR-SEPTODONT-201200394

PATIENT
  Age: 22 Year
  Sex: Male
  Weight: 60 kg

DRUGS (3)
  1. SEPTOCAINE [Suspect]
     Indication: LOCAL ANAESTHESIA
     Dosage: 3/4 CARTRIDGE DENTAL
     Route: 004
     Dates: start: 20111228
  2. X OGEL ENFANT, GEL GINGIVAL [Suspect]
     Indication: LOCAL ANAESTHESIA
     Dosage: DENTAL
     Route: 004
     Dates: start: 20111228
  3. IXPRIM (TRAMADOL, PARACETAMOL) [Concomitant]

REACTIONS (5)
  - ERYTHEMA [None]
  - EYE MOVEMENT DISORDER [None]
  - LOSS OF CONSCIOUSNESS [None]
  - PALLOR [None]
  - MUSCLE TIGHTNESS [None]
